FAERS Safety Report 5655801-9 (Version None)
Quarter: 2008Q1

REPORT INFORMATION
  Report Type: 
  Country: None (occurrence: None)
  Receive Date: 20080307
  Receipt Date: 20080226
  Transmission Date: 20080703
  Serious: Yes (Hospitalization)
  Sender: FDA-Public Use
  Company Number: AU-PFIZER INC-2008017978

PATIENT
  Sex: Female

DRUGS (1)
  1. LYRICA [Suspect]

REACTIONS (9)
  - CEREBROVASCULAR ACCIDENT [None]
  - DIZZINESS [None]
  - FACIAL PALSY [None]
  - FALL [None]
  - HEADACHE [None]
  - HEMIPARESIS [None]
  - ILL-DEFINED DISORDER [None]
  - NAUSEA [None]
  - SPEECH DISORDER [None]
